FAERS Safety Report 6996613-3 (Version None)
Quarter: 2010Q3

REPORT INFORMATION
  Report Type: 
  Country: None (occurrence: None)
  Receive Date: 20100918
  Receipt Date: 20090520
  Transmission Date: 20110219
  Serious: No
  Sender: FDA-Public Use
  Company Number: US-WYE-H09436109

PATIENT
  Sex: Female

DRUGS (1)
  1. EFFEXOR XR [Suspect]
     Dates: start: 20080115, end: 20080512

REACTIONS (5)
  - ANXIETY [None]
  - DIZZINESS [None]
  - DRUG WITHDRAWAL SYNDROME [None]
  - PYREXIA [None]
  - VOMITING [None]
